FAERS Safety Report 4353396-3 (Version None)
Quarter: 2004Q2

REPORT INFORMATION
  Report Type: 
  Country: None (occurrence: None)
  Receive Date: 20040430
  Receipt Date: 20040419
  Transmission Date: 20050107
  Serious: Yes (Hospitalization)
  Sender: FDA-Public Use
  Company Number: US-JNJFOC-20040404263

PATIENT
  Age: 25 Year
  Sex: Female
  Weight: 57.6068 kg

DRUGS (8)
  1. INFLIXIMAB (INFLIXIMAB, RECOMBINANT) LYOPHILIZED POWDER [Suspect]
     Indication: CROHN'S DISEASE
     Dosage: 10 MG/KG, INTRAVENOUS
     Route: 042
     Dates: start: 20031125
  2. INFLIXIMAB (INFLIXIMAB, RECOMBINANT) LYOPHILIZED POWDER [Suspect]
     Indication: CROHN'S DISEASE
     Dosage: 10 MG/KG, INTRAVENOUS
     Route: 042
     Dates: start: 20031209
  3. INFLIXIMAB (INFLIXIMAB, RECOMBINANT) LYOPHILIZED POWDER [Suspect]
  4. INFLIXIMAB ((INFLIXIMAB, RECOMBINANT) LYOPHILIZED POWDER [Suspect]
  5. PREDNISONE TAB [Suspect]
     Indication: CROHN'S DISEASE
  6. NARCOTIC ANALGESICS (ANALGESICS) [Concomitant]
     Indication: CROHN'S DISEASE
  7. DAPSONE [Suspect]
     Indication: CROHN'S DISEASE
  8. ANTIBIOTICS (ANTIBIOTICS) [Concomitant]
     Indication: CROHN'S DISEASE

REACTIONS (4)
  - ABDOMINAL PAIN [None]
  - ENTEROCUTANEOUS FISTULA [None]
  - GENITAL ULCERATION [None]
  - PYREXIA [None]
